FAERS Safety Report 9674935 (Version 1)
Quarter: 2013Q4

REPORT INFORMATION
  Report Type: Spontaneous
  Country: GB (occurrence: GB)
  Receive Date: 20131107
  Receipt Date: 20131107
  Transmission Date: 20140711
  Serious: Yes (Other)
  Sender: FDA-Public Use
  Company Number: GB-JNJFOC-20131100076

PATIENT
  Age: 16 Year
  Sex: Male

DRUGS (3)
  1. TOPIRAMATE [Suspect]
     Indication: HEADACHE
     Route: 048
     Dates: start: 20130909, end: 20131009
  2. SUMATRIPTAN [Concomitant]
     Indication: HEADACHE
     Route: 048
     Dates: start: 20130808
  3. PIZOTIFEN [Concomitant]
     Indication: HEADACHE
     Route: 048
     Dates: start: 20130808, end: 20130909

REACTIONS (2)
  - Leukopenia [Recovering/Resolving]
  - Neutropenia [Recovering/Resolving]
